FAERS Safety Report 5412388-3 (Version None)
Quarter: 2007Q3

REPORT INFORMATION
  Report Type: 
  Country: None (occurrence: None)
  Receive Date: 20070713
  Receipt Date: 20070507
  Transmission Date: 20080115
  Serious: No
  Sender: FDA-Public Use
  Company Number: 2007SP001685

PATIENT
  Age: 67 Year
  Sex: Female
  Weight: 75.7507 kg

DRUGS (13)
  1. LUNESTA [Suspect]
     Indication: INSOMNIA
     Dosage: 2 MG; HS;ORAL
     Route: 048
     Dates: start: 20070501
  2. HYDROCODONE BITARTRATE [Concomitant]
  3. OXYCODONE HCL [Concomitant]
  4. PAXIL [Concomitant]
  5. NEURONTIN [Concomitant]
  6. HYDROCHLOROTHIAZIDE [Concomitant]
  7. DICLOMAX [Concomitant]
  8. ATENOLOL [Concomitant]
  9. SOMA [Concomitant]
  10. VYTORIN [Concomitant]
  11. MELATONIN [Concomitant]
  12. DIPHENHYDRAMINE HCL [Concomitant]
  13. LORAZEPAM [Concomitant]

REACTIONS (2)
  - DYSGEUSIA [None]
  - MIDDLE INSOMNIA [None]
